FAERS Safety Report 12187134 (Version 2)
Quarter: 2016Q1

REPORT INFORMATION
  Report Type: Report from Study
  Country: IT (occurrence: IT)
  Receive Date: 20160317
  Receipt Date: 20160325
  Transmission Date: 20160526
  Serious: Yes (Death)
  Sender: FDA-Public Use
  Company Number: IT-ASTELLAS-2016US003684

PATIENT
  Age: 2 Month
  Sex: Male
  Weight: 2 kg

DRUGS (14)
  1. PENTAGLOBIN [Concomitant]
     Indication: SEPSIS
     Dosage: 700 MG, X 1
     Route: 042
     Dates: start: 20160127, end: 20160129
  2. CEFOTAXIME [Concomitant]
     Active Substance: CEFOTAXIME SODIUM
     Indication: PRODUCT USED FOR UNKNOWN INDICATION
     Dosage: UNK UNK, UNKNOWN FREQ.
     Route: 065
  3. PERFALGAN [Concomitant]
     Active Substance: ACETAMINOPHEN
     Indication: PAIN
     Dosage: 20 MG, X 3
     Route: 042
     Dates: start: 20151229
  4. OMEPRAZOLE. [Concomitant]
     Active Substance: OMEPRAZOLE
     Indication: PRODUCT USED FOR UNKNOWN INDICATION
     Dosage: 5 MG, X 1
     Route: 042
     Dates: start: 20160128
  5. MEFOXITINE [Concomitant]
     Indication: PROPHYLAXIS
     Dosage: 8.5 MG, X 4
     Route: 042
     Dates: start: 20160127, end: 20160129
  6. AMIKACIN [Concomitant]
     Active Substance: AMIKACIN
     Indication: PRODUCT USED FOR UNKNOWN INDICATION
     Dosage: UNK UNK, UNKNOWN FREQ.
     Route: 065
     Dates: start: 20151224
  7. MICAFUNGIN [Suspect]
     Active Substance: MICAFUNGIN
     Indication: SYSTEMIC CANDIDA
     Dosage: 8 MG/KG, TOTAL 21 MG DAILY, UNKNOWN FREQ.
     Route: 065
     Dates: start: 20160104
  8. MEROPEMEN [Concomitant]
     Indication: SEPSIS
     Dosage: 80 MG, X 3
     Route: 042
     Dates: start: 20151229, end: 20160115
  9. METRONIDAZOLE. [Concomitant]
     Active Substance: METRONIDAZOLE
     Indication: SEPSIS
     Dosage: 18 MG, X 3
     Route: 042
     Dates: start: 20151229, end: 20160115
  10. VANCOMYCIN [Concomitant]
     Active Substance: VANCOMYCIN
     Indication: SEPSIS
     Dosage: 24 MG, X 3
     Route: 042
     Dates: start: 20151229, end: 20160115
  11. PARACETAMOL [Concomitant]
     Active Substance: ACETAMINOPHEN
     Indication: PAIN
     Dosage: UNK UNK, UNKNOWN FREQ.
     Route: 065
  12. PARACETAMOL [Concomitant]
     Active Substance: ACETAMINOPHEN
     Indication: PYREXIA
  13. GENTAMYCIN                         /00047101/ [Concomitant]
     Active Substance: GENTAMICIN
     Indication: PROPHYLAXIS
     Dosage: 15 MG, X 1
     Route: 042
     Dates: start: 20160127, end: 20160129
  14. CEFTAZIDIME. [Concomitant]
     Active Substance: CEFTAZIDIME
     Indication: PRODUCT USED FOR UNKNOWN INDICATION
     Dosage: UNK UNK, UNKNOWN FREQ.
     Route: 065
     Dates: start: 20151224

REACTIONS (3)
  - Disseminated intravascular coagulation [Fatal]
  - Klebsiella sepsis [Fatal]
  - Off label use [Unknown]

NARRATIVE: CASE EVENT DATE: 20160130
